FAERS Safety Report 9564027 (Version 3)
Quarter: 2015Q2

REPORT INFORMATION
  Report Type: Spontaneous
  Country: CA (occurrence: CA)
  Receive Date: 20130928
  Receipt Date: 20150429
  Transmission Date: 20150821
  Serious: Yes (Other)
  Sender: FDA-Public Use
  Company Number: CA-ROCHE-1281568

PATIENT
  Age: 19 Year
  Sex: Female

DRUGS (5)
  1. NASONEX [Concomitant]
     Active Substance: MOMETASONE FUROATE
  2. SINGULAIR [Concomitant]
     Active Substance: MONTELUKAST SODIUM
  3. BRICANYL [Concomitant]
     Active Substance: TERBUTALINE SULFATE
  4. XOLAIR [Suspect]
     Active Substance: OMALIZUMAB
     Indication: ASTHMA
     Route: 058
     Dates: start: 20120615
  5. XOLAIR [Suspect]
     Active Substance: OMALIZUMAB
     Route: 058
     Dates: start: 20130927

REACTIONS (9)
  - Injection site haemorrhage [Unknown]
  - Dyspnoea [Unknown]
  - Chest discomfort [Unknown]
  - Ear infection [Unknown]
  - Pyrexia [Unknown]
  - Oropharyngeal pain [Unknown]
  - Asthma [Unknown]
  - Cough [Unknown]
  - Anxiety [Not Recovered/Not Resolved]

NARRATIVE: CASE EVENT DATE: 20121115
